FAERS Safety Report 18623834 (Version 1)
Quarter: 2020Q4

REPORT INFORMATION
  Report Type: Spontaneous
  Country: US (occurrence: US)
  Receive Date: 20201216
  Receipt Date: 20201216
  Transmission Date: 20210114
  Serious: Yes (Hospitalization)
  Sender: FDA-Public Use
  Company Number: None

PATIENT
  Age: 89 Year
  Sex: Female
  Weight: 77.3 kg

DRUGS (1)
  1. BAMLANIVIMAB. [Suspect]
     Active Substance: BAMLANIVIMAB
     Indication: COVID-19
     Dosage: ?          OTHER FREQUENCY:ONCE;?
     Route: 041
     Dates: start: 20201205, end: 20201205

REACTIONS (6)
  - Fall [None]
  - Retroperitoneal haematoma [None]
  - Intentional product use issue [None]
  - Anaemia [None]
  - Orthostatic hypotension [None]
  - Hypophagia [None]

NARRATIVE: CASE EVENT DATE: 20201207
